FAERS Safety Report 19989824 (Version 1)
Quarter: 2021Q4

REPORT INFORMATION
  Report Type: Spontaneous
  Country: US (occurrence: US)
  Receive Date: 20211021
  Receipt Date: 20211021
  Transmission Date: 20220303
  Serious: No
  Sender: FDA-Public Use
  Company Number: None

PATIENT
  Age: 71 Year
  Sex: Female
  Weight: 60.78 kg

DRUGS (2)
  1. RINVOQ [Suspect]
     Active Substance: UPADACITINIB
     Indication: Osteoporosis
     Route: 048
     Dates: start: 202109
  2. RINVOQ [Suspect]
     Active Substance: UPADACITINIB
     Indication: Osteoporosis

REACTIONS (1)
  - Blood disorder [None]
